FAERS Safety Report 13946741 (Version 1)
Quarter: 2017Q3

REPORT INFORMATION
  Report Type: Spontaneous
  Country: US (occurrence: US)
  Receive Date: 20170907
  Receipt Date: 20170907
  Transmission Date: 20171128
  Serious: Yes (Other)
  Sender: FDA-Public Use
  Company Number: US-009507513-1709USA002118

PATIENT

DRUGS (6)
  1. VITAMIN A (+) VITAMIN D (UNSPECIFIED) [Concomitant]
     Dosage: VITAMIN A 2500/ VITAMIN D 400
  2. PHYTONADIONE. [Concomitant]
     Active Substance: PHYTONADIONE
  3. PROBIOTICS (UNSPECIFIED) [Concomitant]
     Active Substance: PROBIOTICS NOS
     Dosage: UNK, QD
  4. METFORMIN HYDROCHLORIDE. [Concomitant]
     Active Substance: METFORMIN HYDROCHLORIDE
  5. ZEPATIER [Suspect]
     Active Substance: ELBASVIR\GRAZOPREVIR
     Indication: HEPATITIS C
     Dosage: 1 TABLET (50-100MG) BY MOUTH EVERY DAY
     Route: 048
     Dates: start: 201708
  6. ZYRTEC [Concomitant]
     Active Substance: CETIRIZINE HYDROCHLORIDE

REACTIONS (2)
  - Diabetes mellitus [Unknown]
  - Headache [Unknown]

NARRATIVE: CASE EVENT DATE: 2017
